FAERS Safety Report 11172744 (Version 1)
Quarter: 2015Q2

REPORT INFORMATION
  Report Type: Report from Study
  Country: JP (occurrence: JP)
  Receive Date: 20150608
  Receipt Date: 20150608
  Transmission Date: 20150821
  Serious: Yes (Other)
  Sender: FDA-Public Use
  Company Number: JP-ASTRAZENECA-2015SE55562

PATIENT
  Age: 24534 Day
  Sex: Female

DRUGS (8)
  1. LANTUS [Concomitant]
     Active Substance: INSULIN GLARGINE
     Route: 065
     Dates: start: 20150320
  2. VOGLIBOSE OD [Concomitant]
     Active Substance: VOGLIBOSE
     Route: 048
     Dates: start: 20141127, end: 20150108
  3. GLIMEPIRIDE. [Concomitant]
     Active Substance: GLIMEPIRIDE
     Route: 048
     Dates: start: 20141211, end: 20150305
  4. PIOGLITAZONE [Concomitant]
     Active Substance: PIOGLITAZONE
     Route: 048
     Dates: start: 20150123
  5. FAMOTIDINE. [Concomitant]
     Active Substance: FAMOTIDINE
     Route: 048
  6. ONGLYZA [Suspect]
     Active Substance: SAXAGLIPTIN HYDROCHLORIDE
     Indication: TYPE 2 DIABETES MELLITUS
     Route: 048
     Dates: start: 20141127
  7. AMLODIPINE [Concomitant]
     Active Substance: AMLODIPINE BESYLATE
     Route: 048
  8. MICARDIS [Concomitant]
     Active Substance: TELMISARTAN
     Route: 048

REACTIONS (7)
  - Blood glucose increased [Unknown]
  - Coma [Recovered/Resolved]
  - Pyrexia [Unknown]
  - Renal failure [Recovered/Resolved]
  - Hyponatraemia [Unknown]
  - Dehydration [Unknown]
  - Hypernatraemia [Unknown]

NARRATIVE: CASE EVENT DATE: 20141127
